FAERS Safety Report 8846102 (Version 1)
Quarter: 2012Q4

REPORT INFORMATION
  Report Type: 
  Country: US (occurrence: US)
  Receive Date: 20121017
  Receipt Date: 20121017
  Transmission Date: 20130627
  Serious: No
  Sender: FDA-Public Use
  Company Number: US-009507513-1210USA006170

PATIENT

DRUGS (2)
  1. SINGULAIR [Suspect]
     Indication: ASTHMA
     Dosage: 5 mg, UNK
     Route: 048
  2. SINGULAIR [Suspect]
     Dosage: 4 mg, UNK

REACTIONS (1)
  - Insomnia [Unknown]
